FAERS Safety Report 24011752 (Version 1)
Quarter: 2024Q2

REPORT INFORMATION
  Report Type: Other
  Country: AE (occurrence: AE)
  Receive Date: 20240625
  Receipt Date: 20240625
  Transmission Date: 20240716
  Serious: Yes (Life-Threatening)
  Sender: FDA-Public Use
  Company Number: AE-B.Braun Medical Inc.-2158506

PATIENT
  Age: 21 Year
  Sex: Male

DRUGS (6)
  1. DEXTROSE\LIDOCAINE HYDROCHLORIDE [Suspect]
     Active Substance: DEXTROSE\LIDOCAINE HYDROCHLORIDE
     Indication: Ventricular tachycardia
     Route: 042
  2. DEXTROSE\LIDOCAINE HYDROCHLORIDE [Suspect]
     Active Substance: DEXTROSE\LIDOCAINE HYDROCHLORIDE
     Indication: Ventricular arrhythmia
  3. AMIODARONE [Suspect]
     Active Substance: AMIODARONE
  4. HYDROCORTISONE [Suspect]
     Active Substance: HYDROCORTISONE\HYDROCORTISONE ACETATE
  5. PROPRANOLOL [Suspect]
     Active Substance: PROPRANOLOL HYDROCHLORIDE
  6. CARBIMAZOLE [Suspect]
     Active Substance: CARBIMAZOLE

REACTIONS (1)
  - Drug ineffective [Unknown]
